FAERS Safety Report 6596326-6 (Version None)
Quarter: 2010Q1

REPORT INFORMATION
  Report Type: 
  Country: None (occurrence: None)
  Receive Date: 20100223
  Receipt Date: 20100215
  Transmission Date: 20100710
  Serious: Yes (Hospitalization, Other)
  Sender: FDA-Public Use
  Company Number: PHHO2010US02596

PATIENT
  Sex: Female
  Weight: 70 kg

DRUGS (10)
  1. MYFORTIC [Suspect]
     Indication: RENAL TRANSPLANT
     Dosage: 360 MG, BID
  2. ALEFACEPT [Concomitant]
     Indication: RENAL TRANSPLANT
     Dosage: 7.5 MG
     Route: 042
     Dates: start: 20091014
  3. PROGRAF [Concomitant]
  4. PREDNISONE [Concomitant]
  5. DILTIAZEM HCL [Concomitant]
  6. VALCYTE [Concomitant]
  7. ASPIRIN [Concomitant]
  8. PREVACID [Concomitant]
  9. BACTRIM [Concomitant]
  10. ACYCLOVIR [Concomitant]

REACTIONS (13)
  - ANAEMIA [None]
  - ATRIAL FIBRILLATION [None]
  - HEADACHE [None]
  - HEART RATE IRREGULAR [None]
  - HYPERTENSION [None]
  - IDIOSYNCRATIC DRUG REACTION [None]
  - MUSCULOSKELETAL STIFFNESS [None]
  - MYALGIA [None]
  - MYOGLOBIN BLOOD INCREASED [None]
  - OROPHARYNGEAL PAIN [None]
  - PAIN [None]
  - RHINORRHOEA [None]
  - VENTRICULAR TACHYCARDIA [None]
